FAERS Safety Report 4550726-4 (Version None)
Quarter: 2004Q4

REPORT INFORMATION
  Report Type: 
  Country: None (occurrence: None)
  Receive Date: 20041217
  Receipt Date: 20040927
  Transmission Date: 20050328
  Serious: No
  Sender: FDA-Public Use
  Company Number: 2004-BP-08826BP

PATIENT
  Sex: Female

DRUGS (5)
  1. SPIRIVA [Suspect]
     Indication: CHRONIC OBSTRUCTIVE AIRWAYS DISEASE
     Dosage: 18 MCG (18 MCG 1 TIME DAILY) IH
     Route: 055
  2. ALBUTEROL [Concomitant]
  3. TOPROL (METOPROLOL SUCCINATE) [Concomitant]
  4. ACETYLSALICYLIC ACID SRT [Concomitant]
  5. TYLENOL WITH CODEINE (PANADIENE CO) [Concomitant]

REACTIONS (1)
  - THERAPEUTIC RESPONSE DECREASED [None]
